FAERS Safety Report 4779179-8 (Version None)
Quarter: 2005Q3

REPORT INFORMATION
  Report Type: 
  Country: None (occurrence: None)
  Receive Date: 20050923
  Receipt Date: 20050908
  Transmission Date: 20060218
  Serious: Yes (Other)
  Sender: FDA-Public Use
  Company Number: 2005PV001024

PATIENT
  Age: 54 Year
  Sex: Female
  Weight: 67.1324 kg

DRUGS (11)
  1. SYMLIN [Suspect]
     Indication: DIABETES MELLITUS INSULIN-DEPENDENT
     Dosage: SEE IMAGE, SC
     Route: 058
     Dates: start: 20050801, end: 20050812
  2. SYMLIN [Suspect]
     Indication: DIABETES MELLITUS INSULIN-DEPENDENT
     Dosage: SEE IMAGE, SC
     Route: 058
     Dates: start: 20050801, end: 20050814
  3. SYMLIN [Suspect]
     Indication: DIABETES MELLITUS INSULIN-DEPENDENT
     Dosage: SEE IMAGE, SC
     Route: 058
     Dates: start: 20050815, end: 20050815
  4. SYMLIN [Suspect]
     Indication: DIABETES MELLITUS INSULIN-DEPENDENT
     Dosage: SEE IMAGE, SC
     Route: 058
     Dates: start: 20050701
  5. SYMLIN [Suspect]
     Indication: DIABETES MELLITUS INSULIN-DEPENDENT
     Dosage: SEE IMAGE, SC
     Route: 058
     Dates: start: 20050719
  6. LANTUS [Concomitant]
  7. HUMALOG [Concomitant]
  8. TIAZAC [Concomitant]
  9. AVAPRO [Concomitant]
  10. LIPITOR [Concomitant]
  11. HUMALOG [Concomitant]

REACTIONS (17)
  - ABDOMINAL PAIN UPPER [None]
  - ANOREXIA [None]
  - BLOOD GLUCOSE DECREASED [None]
  - BLOOD GLUCOSE INCREASED [None]
  - CONSTIPATION [None]
  - DEHYDRATION [None]
  - DIZZINESS [None]
  - EARLY SATIETY [None]
  - FEELING ABNORMAL [None]
  - GASTROENTERITIS [None]
  - GASTROINTESTINAL DISORDER [None]
  - GLYCOSYLATED HAEMOGLOBIN INCREASED [None]
  - LOSS OF CONSCIOUSNESS [None]
  - NAUSEA [None]
  - RETCHING [None]
  - VOMITING [None]
  - WEIGHT DECREASED [None]
